FAERS Safety Report 7402283-2 (Version None)
Quarter: 2011Q2

REPORT INFORMATION
  Report Type: 
  Country: None (occurrence: None)
  Receive Date: 20110408
  Receipt Date: 20110328
  Transmission Date: 20111010
  Serious: Yes (Hospitalization, Other)
  Sender: FDA-Public Use
  Company Number: BR-NOVOPROD-325578

PATIENT
  Age: 11 Year
  Sex: Male
  Weight: 35 kg

DRUGS (3)
  1. NOVOSEVEN [Suspect]
     Dosage: 180KIU EVERY 4 HOURS
  2. FEIBA [Concomitant]
     Indication: HAEMOPHILIA A WITH ANTI FACTOR VIII
     Dosage: ONLY IN CASES OF LESION, PRN EVERY 6 HOURS AND EVERY 12 HOURS
     Route: 042
     Dates: start: 20000324
  3. NOVOSEVEN [Suspect]
     Indication: HAEMOPHILIA A WITH ANTI FACTOR VIII
     Dosage: 3 INJECTIONS, WITH 2 AND 3 HOURS BETWEEN EACH INJECTION, ONLY IN CASES OF LESION, PRN
     Route: 042
     Dates: start: 20090324

REACTIONS (7)
  - TACHYCARDIA [None]
  - RETROPERITONEAL HAEMORRHAGE [None]
  - THERAPEUTIC RESPONSE DECREASED [None]
  - DIARRHOEA [None]
  - HYPOVOLAEMIC SHOCK [None]
  - VOMITING [None]
  - ABDOMINAL PAIN [None]
